FAERS Safety Report 8918933 (Version 2)
Quarter: 2013Q1

REPORT INFORMATION
  Report Type: Spontaneous
  Country: CZ (occurrence: CZ)
  Receive Date: 20121121
  Receipt Date: 20130212
  Transmission Date: 20140127
  Serious: Yes (Other)
  Sender: FDA-Public Use
  Company Number: CZ-JNJFOC-20121107684

PATIENT
  Age: 5 Decade
  Sex: Male

DRUGS (6)
  1. DOXORUBICIN [Suspect]
     Indication: CASTLEMAN^S DISEASE
     Dosage: ON DAY 1 (TOTAL OF 3 CYCLES ADMINISTERED)
     Route: 042
     Dates: start: 200812, end: 200902
  2. ADRIAMYCIN [Suspect]
     Indication: CASTLEMAN^S DISEASE
     Dosage: ON DAY 1 (TOTAL OF 3 CYCLES ADMINISTERED)
     Route: 042
     Dates: start: 200812, end: 200902
  3. CYCLOPHOSPHAMIDE [Suspect]
     Indication: CASTLEMAN^S DISEASE
     Dosage: ON DAY 1 (TOTAL OF 3 CYCLES ADMINISTERED)
     Route: 042
     Dates: start: 200812, end: 200902
  4. VINCRISTINE [Suspect]
     Indication: CASTLEMAN^S DISEASE
     Dosage: ON DAY 1 (TOTAL OF 3 CYCLES ADMINISTERED)
     Route: 042
     Dates: start: 200812, end: 200902
  5. PREDNISONE [Suspect]
     Indication: CASTLEMAN^S DISEASE
     Dosage: ON DAYS 1-5 (TOTAL OF 3 CYCLES ADMINISTERED)
     Route: 048
     Dates: start: 200812, end: 200902
  6. RITUXIMAB [Suspect]
     Indication: CASTLEMAN^S DISEASE
     Dosage: ON DAY 1 (TOTAL OF 3 CYCLES ADMINISTERED)
     Route: 042
     Dates: start: 200812, end: 200902

REACTIONS (3)
  - Vasculitis [Unknown]
  - Lymphadenopathy [Unknown]
  - Off label use [Unknown]
